FAERS Safety Report 6112711-0 (Version None)
Quarter: 2009Q1

REPORT INFORMATION
  Report Type: 
  Country: None (occurrence: None)
  Receive Date: 20090310
  Receipt Date: 20090225
  Transmission Date: 20090719
  Serious: Yes (Other)
  Sender: FDA-Public Use
  Company Number: 1000005013

PATIENT
  Sex: Female

DRUGS (7)
  1. ESCITALOPRAM [Suspect]
     Indication: ANXIETY
     Dosage: 10 MG (10 MG, 1 IN 1 D), ORAL; 15 MG (15 MG, 1 IN 1 D), ORAL; 20 MG (20 MG, 1 IN 1 D), ORAL
     Route: 048
     Dates: start: 20070406, end: 20070407
  2. ESCITALOPRAM [Suspect]
     Indication: DEPRESSION
     Dosage: 10 MG (10 MG, 1 IN 1 D), ORAL; 15 MG (15 MG, 1 IN 1 D), ORAL; 20 MG (20 MG, 1 IN 1 D), ORAL
     Route: 048
     Dates: start: 20070406, end: 20070407
  3. ESCITALOPRAM [Suspect]
     Indication: ANXIETY
     Dosage: 10 MG (10 MG, 1 IN 1 D), ORAL; 15 MG (15 MG, 1 IN 1 D), ORAL; 20 MG (20 MG, 1 IN 1 D), ORAL
     Route: 048
     Dates: start: 20070408, end: 20070409
  4. ESCITALOPRAM [Suspect]
     Indication: DEPRESSION
     Dosage: 10 MG (10 MG, 1 IN 1 D), ORAL; 15 MG (15 MG, 1 IN 1 D), ORAL; 20 MG (20 MG, 1 IN 1 D), ORAL
     Route: 048
     Dates: start: 20070408, end: 20070409
  5. ESCITALOPRAM [Suspect]
     Indication: ANXIETY
     Dosage: 10 MG (10 MG, 1 IN 1 D), ORAL; 15 MG (15 MG, 1 IN 1 D), ORAL; 20 MG (20 MG, 1 IN 1 D), ORAL
     Route: 048
     Dates: start: 20070410
  6. ESCITALOPRAM [Suspect]
     Indication: DEPRESSION
     Dosage: 10 MG (10 MG, 1 IN 1 D), ORAL; 15 MG (15 MG, 1 IN 1 D), ORAL; 20 MG (20 MG, 1 IN 1 D), ORAL
     Route: 048
     Dates: start: 20070410
  7. SERTRALINE HYDROCHLORIDE [Concomitant]

REACTIONS (5)
  - ANXIETY [None]
  - FATIGUE [None]
  - NAUSEA [None]
  - SUICIDAL IDEATION [None]
  - TERMINAL INSOMNIA [None]
